FAERS Safety Report 23084379 (Version 2)
Quarter: 2023Q4

REPORT INFORMATION
  Report Type: Spontaneous
  Country: BE (occurrence: BE)
  Receive Date: 20231019
  Receipt Date: 20231027
  Transmission Date: 20240110
  Serious: No
  Sender: FDA-Public Use
  Company Number: BE-PFIZER INC-202300317824

PATIENT
  Age: 73 Year
  Sex: Male
  Weight: 116 kg

DRUGS (7)
  1. DOXORUBICIN HYDROCHLORIDE [Suspect]
     Active Substance: DOXORUBICIN HYDROCHLORIDE
     Indication: Angiosarcoma
     Dosage: UNK, CYCLIC (6 SESSIONS WITH 3 WEEKS IN BETWEEN THE SESSIONS)
     Route: 042
     Dates: start: 20220629, end: 20221019
  2. IFOSFAMIDE [Suspect]
     Active Substance: IFOSFAMIDE
     Indication: Angiosarcoma
     Dosage: UNK, CYCLIC (6 SESSIONS WITH 3 WEEKS IN BETWEEN THE SESSIONS)
     Route: 042
     Dates: start: 202207, end: 202212
  3. METFORMIN [Concomitant]
     Active Substance: METFORMIN HYDROCHLORIDE
     Indication: Type 2 diabetes mellitus
     Dosage: 850 UNK, 2X/DAY
     Dates: start: 2003
  4. NOBITEN [NEBIVOLOL] [Concomitant]
     Indication: Hypertension
     Dosage: UNK
  5. PERINDOPRIL ARGININE [Concomitant]
     Active Substance: PERINDOPRIL ARGININE
     Indication: Hypertension
     Dosage: UNK
  6. LEVOTHYROXINE [Concomitant]
     Active Substance: LEVOTHYROXINE
     Indication: Graves^ disease
     Dosage: 100 UG, DAILY
     Dates: start: 2009
  7. LEVOTHYROXINE [Concomitant]
     Active Substance: LEVOTHYROXINE
     Indication: Radioactive iodine therapy

REACTIONS (2)
  - Neoplasm progression [Not Recovered/Not Resolved]
  - Weight decreased [Unknown]

NARRATIVE: CASE EVENT DATE: 20230124
